APPROVED DRUG PRODUCT: PREMASOL 6% IN PLASTIC CONTAINER
Active Ingredient: AMINO ACIDS
Strength: 6% (6GM/100ML)
Dosage Form/Route: INJECTABLE;INJECTION
Application: A075880 | Product #001
Applicant: BAXTER HEALTHCARE CORP
Approved: Jun 19, 2003 | RLD: No | RS: No | Type: RX